FAERS Safety Report 4680742-3 (Version None)
Quarter: 2005Q2

REPORT INFORMATION
  Report Type: 
  Country: None (occurrence: None)
  Receive Date: 20050601
  Receipt Date: 20050524
  Transmission Date: 20051028
  Serious: Yes (Death)
  Sender: FDA-Public Use
  Company Number: 2005079982

PATIENT
  Age: 69 Year
  Sex: Female
  Weight: 66.4 kg

DRUGS (1)
  1. GENOTROPIN [Suspect]
     Indication: HYPOPITUITARISM
     Dosage: 0.4 MG (0.4 MG, DAILY), SUBCUTANEOUS
     Route: 058
     Dates: start: 20010731, end: 20041019

REACTIONS (1)
  - RECTAL CANCER [None]
